FAERS Safety Report 24941453 (Version 1)
Quarter: 2025Q1

REPORT INFORMATION
  Report Type: Spontaneous
  Country: ZA (occurrence: ZA)
  Receive Date: 20250207
  Receipt Date: 20250207
  Transmission Date: 20250409
  Serious: Yes (Death, Hospitalization)
  Sender: MYLAN
  Company Number: ZA-MYLANLABS-2025M1010361

PATIENT
  Age: 3 Year
  Sex: Male

DRUGS (7)
  1. ALBUTEROL [Suspect]
     Active Substance: ALBUTEROL
     Indication: Upper airway obstruction
     Route: 065
  2. EPINEPHRINE [Suspect]
     Active Substance: EPINEPHRINE
     Indication: Upper airway obstruction
     Route: 065
  3. AZITHROMYCIN [Suspect]
     Active Substance: AZITHROMYCIN
     Indication: Upper airway obstruction
     Route: 065
  4. AZITHROMYCIN [Suspect]
     Active Substance: AZITHROMYCIN
     Indication: Corynebacterium infection
  5. PREDNISONE [Suspect]
     Active Substance: PREDNISONE
     Indication: Upper airway obstruction
     Route: 065
  6. DIPHTHERIA ANTITOXIN [Suspect]
     Active Substance: DIPHTHERIA ANTITOXIN
     Indication: Upper airway obstruction
     Route: 065
  7. DIPHTHERIA ANTITOXIN [Suspect]
     Active Substance: DIPHTHERIA ANTITOXIN
     Indication: Corynebacterium infection

REACTIONS (1)
  - Drug ineffective [Fatal]
